FAERS Safety Report 6845845-3 (Version None)
Quarter: 2010Q3

REPORT INFORMATION
  Report Type: 
  Country: None (occurrence: None)
  Receive Date: 20100715
  Receipt Date: 20071024
  Transmission Date: 20110219
  Serious: No
  Sender: FDA-Public Use
  Company Number: US-PFIZER INC-2007071943

PATIENT
  Sex: Female
  Weight: 54.5 kg

DRUGS (4)
  1. CHANTIX [Suspect]
     Indication: SMOKING CESSATION THERAPY
     Route: 048
     Dates: start: 20070826
  2. VITAMINS [Concomitant]
  3. FLONASE [Concomitant]
  4. CLARITIN-D [Concomitant]

REACTIONS (5)
  - EYE DISORDER [None]
  - FATIGUE [None]
  - LETHARGY [None]
  - VISION BLURRED [None]
  - VISUAL IMPAIRMENT [None]
